FAERS Safety Report 10417444 (Version 1)
Quarter: 2014Q3

REPORT INFORMATION
  Report Type: Spontaneous
  Country: US (occurrence: US)
  Receive Date: 20140829
  Receipt Date: 20140829
  Transmission Date: 20150326
  Serious: No
  Sender: FDA-Public Use
  Company Number: US-009507513-1407USA014006

PATIENT
  Age: 14 Year
  Sex: Female
  Weight: 52.15 kg

DRUGS (1)
  1. NEXPLANON [Suspect]
     Active Substance: ETONOGESTREL
     Indication: CONTRACEPTION
     Dosage: 1 IMPLANT/ 3 YEARS, LEFT ARM
     Route: 059
     Dates: start: 20140422

REACTIONS (4)
  - Vaginal haemorrhage [Unknown]
  - Pyrexia [Unknown]
  - Premenstrual syndrome [Unknown]
  - Mood altered [Unknown]

NARRATIVE: CASE EVENT DATE: 2014
